FAERS Safety Report 24527654 (Version 1)
Quarter: 2024Q4

REPORT INFORMATION
  Report Type: Spontaneous
  Country: US (occurrence: US)
  Receive Date: 20241021
  Receipt Date: 20241021
  Transmission Date: 20250115
  Serious: No
  Sender: AMNEAL
  Company Number: US-AMNEAL PHARMACEUTICALS-2024-AMRX-00015

PATIENT
  Age: 71 Year
  Sex: Female

DRUGS (2)
  1. PROGESTERONE [Suspect]
     Active Substance: PROGESTERONE
     Indication: Vulvovaginal dryness
     Dosage: 100 MILLIGRAM, DAILY
     Route: 048
  2. ESTROGENS [Suspect]
     Active Substance: ESTROGENS
     Indication: Vulvovaginal dryness
     Dosage: 0.025 MG PATCH, TWICE A WEEK LATER CHANGED TO ONCE A WEEK
     Route: 062
     Dates: start: 202312

REACTIONS (1)
  - Vaginal haemorrhage [Recovered/Resolved]
